FAERS Safety Report 13558354 (Version 2)
Quarter: 2017Q2

REPORT INFORMATION
  Report Type: Spontaneous
  Country: US (occurrence: US)
  Receive Date: 20170518
  Receipt Date: 20170606
  Transmission Date: 20170830
  Serious: Yes (Other)
  Sender: FDA-Public Use
  Company Number: US-KOWA-17US000964

PATIENT

DRUGS (6)
  1. GABAPENTIN. [Concomitant]
     Active Substance: GABAPENTIN
     Indication: NEURALGIA
     Dosage: 300 MG, TID
  2. LIVALO [Suspect]
     Active Substance: PITAVASTATIN CALCIUM
     Indication: BLOOD CHOLESTEROL INCREASED
     Dosage: 2 MG, QD
     Dates: start: 20140609, end: 20140619
  3. LIPITOR [Suspect]
     Active Substance: ATORVASTATIN CALCIUM
     Indication: BLOOD CHOLESTEROL INCREASED
     Dosage: 20 MG, QD
     Dates: end: 2014
  4. KETACONAZOLE CREAM [Concomitant]
     Indication: SEBORRHOEIC DERMATITIS
     Dosage: UNK
     Dates: start: 2005
  5. PERCOCET                           /00446701/ [Concomitant]
     Active Substance: ACETAMINOPHEN\OXYCODONE HYDROCHLORIDE\OXYCODONE TEREPHTHALATE
     Indication: PAIN
  6. ZETIA [Concomitant]
     Active Substance: EZETIMIBE
     Dosage: 10 MG

REACTIONS (21)
  - Hyporeflexia [Unknown]
  - Peroneal nerve injury [Unknown]
  - Muscle tightness [Unknown]
  - Muscle atrophy [Unknown]
  - Ulnar nerve injury [Unknown]
  - Screaming [Unknown]
  - Nerve injury [Unknown]
  - Muscle injury [Unknown]
  - Asthenia [Unknown]
  - Walking aid user [Recovered/Resolved]
  - Loss of personal independence in daily activities [Recovering/Resolving]
  - Hyporeflexia [Unknown]
  - Walking aid user [Recovered/Resolved]
  - Muscle contractions involuntary [Unknown]
  - Tenderness [Unknown]
  - Pain in extremity [Unknown]
  - Demyelination [Unknown]
  - Muscle spasms [Recovered/Resolved]
  - Gait disturbance [Recovered/Resolved]
  - Pain [Recovered/Resolved]
  - Asthenia [Recovering/Resolving]

NARRATIVE: CASE EVENT DATE: 2014
